FAERS Safety Report 4726724-4 (Version None)
Quarter: 2005Q3

REPORT INFORMATION
  Report Type: 
  Country: None (occurrence: None)
  Receive Date: 20050725
  Receipt Date: 20050204
  Transmission Date: 20060218
  Serious: No
  Sender: FDA-Public Use
  Company Number: USA050289930

PATIENT
  Age: 8 Year
  Sex: Male
  Weight: 23 kg

DRUGS (2)
  1. STRATTERA [Suspect]
     Indication: ANXIETY
     Dosage: 58 MG DAY
  2. TEGRETOL (CARBAMAZEPINE RIVOPHARM) [Concomitant]

REACTIONS (3)
  - ABNORMAL BEHAVIOUR [None]
  - NEGATIVISM [None]
  - PRESCRIBED OVERDOSE [None]
